FAERS Safety Report 7755237-0 (Version None)
Quarter: 2011Q3

REPORT INFORMATION
  Report Type: 
  Country: None (occurrence: None)
  Receive Date: 20110914
  Receipt Date: 20110902
  Transmission Date: 20111222
  Serious: Yes (Other)
  Sender: FDA-Public Use
  Company Number: DSJ-2011-19401

PATIENT
  Age: 60 Year
  Sex: Female
  Weight: 55 kg

DRUGS (3)
  1. DIOVAN [Concomitant]
  2. OLMESARTAN MEDOXOMIL [Suspect]
     Indication: ESSENTIAL HYPERTENSION
     Dosage: 20 MG, PER ORAL
     Route: 048
     Dates: start: 20100403, end: 20100418
  3. CRESTOR [Concomitant]

REACTIONS (1)
  - HYPOAESTHESIA ORAL [None]
